FAERS Safety Report 4530748-X (Version None)
Quarter: 2004Q4

REPORT INFORMATION
  Report Type: 
  Country: None (occurrence: None)
  Receive Date: 20041216
  Receipt Date: 20041201
  Transmission Date: 20050328
  Serious: Yes (Hospitalization)
  Sender: FDA-Public Use
  Company Number: 2003JP007334

PATIENT
  Age: 12 Year
  Sex: Female

DRUGS (1)
  1. PROGRAF [Suspect]
     Indication: LIVER TRANSPLANT

REACTIONS (15)
  - ACTIVATED PARTIAL THROMBOPLASTIN TIME PROLONGED [None]
  - ACUTE MYELOID LEUKAEMIA [None]
  - ASPARTATE AMINOTRANSFERASE INCREASED [None]
  - BLOOD CALCIUM DECREASED [None]
  - BLOOD CHLORIDE DECREASED [None]
  - BLOOD LACTATE DEHYDROGENASE INCREASED [None]
  - BLOOD POTASSIUM DECREASED [None]
  - BLOOD SODIUM DECREASED [None]
  - BLOOD UREA DECREASED [None]
  - HAEMATOCRIT DECREASED [None]
  - HAEMOGLOBIN DECREASED [None]
  - LIVER TRANSPLANT REJECTION [None]
  - PLATELET COUNT DECREASED [None]
  - PROTHROMBIN TIME PROLONGED [None]
  - RED BLOOD CELL COUNT DECREASED [None]
